FAERS Safety Report 6380236-3 (Version None)
Quarter: 2009Q3

REPORT INFORMATION
  Report Type: 
  Country: None (occurrence: None)
  Receive Date: 20090929
  Receipt Date: 20090921
  Transmission Date: 20100115
  Serious: Yes (Other)
  Sender: FDA-Public Use
  Company Number: US-WYE-H10741909

PATIENT
  Sex: Female

DRUGS (4)
  1. PRISTIQ [Suspect]
     Indication: DEPRESSION
     Route: 048
     Dates: start: 20090813, end: 20090826
  2. MOTRIN [Concomitant]
     Indication: HEADACHE
     Dosage: 2 TABS PRN
     Route: 048
     Dates: start: 19800101
  3. MOTRIN [Concomitant]
     Indication: MIGRAINE
  4. MEPYRAMINE MALEATE/PAMABROM/PARACETAMOL [Concomitant]
     Indication: DYSMENORRHOEA
     Dosage: 2 TABS PRN
     Route: 048
     Dates: start: 19980101

REACTIONS (2)
  - DRUG INEFFECTIVE [None]
  - SUICIDAL IDEATION [None]
